FAERS Safety Report 8366174-5 (Version None)
Quarter: 2012Q1

REPORT INFORMATION
  Report Type: 
  Country: None (occurrence: None)
  Receive Date: 20120323
  Receipt Date: 20110727
  Transmission Date: 20120608
  Serious: Yes (Life-Threatening, Hospitalization, Other)
  Sender: FDA-Public Use
  Company Number: 163-21880-11041362

PATIENT
  Age: 90 Year
  Sex: Male

DRUGS (4)
  1. DECADRON [Concomitant]
  2. REVLIMID [Suspect]
     Indication: MULTIPLE MYELOMA
     Dosage: 10 MG,C4 IN 2 D, PO, 20 MG, Q2D, PO,  10 MG, Q2D, PO
     Route: 048
     Dates: start: 20101207, end: 20110311
  3. REVLIMID [Suspect]
     Indication: MULTIPLE MYELOMA
     Dosage: 10 MG,C4 IN 2 D, PO, 20 MG, Q2D, PO,  10 MG, Q2D, PO
     Route: 048
     Dates: start: 20110401
  4. REVLIMID [Suspect]
     Indication: MULTIPLE MYELOMA
     Dosage: 10 MG,C4 IN 2 D, PO, 20 MG, Q2D, PO,  10 MG, Q2D, PO
     Route: 048
     Dates: start: 20101119

REACTIONS (4)
  - SEPSIS [None]
  - BLOOD CREATININE INCREASED [None]
  - NEUTROPENIA [None]
  - LOBAR PNEUMONIA [None]
